FAERS Safety Report 6669293-4 (Version None)
Quarter: 2010Q2

REPORT INFORMATION
  Report Type: 
  Country: None (occurrence: None)
  Receive Date: 20100402
  Receipt Date: 20100328
  Transmission Date: 20101027
  Serious: Yes (Hospitalization)
  Sender: FDA-Public Use
  Company Number: PIR# 1003054

PATIENT
  Age: 61 Year
  Sex: Female

DRUGS (1)
  1. CEFUROXIME [Suspect]

REACTIONS (18)
  - ANAPHYLACTIC SHOCK [None]
  - ARTERIOSCLEROSIS [None]
  - BLOOD CHOLESTEROL INCREASED [None]
  - BLOOD CREATINE PHOSPHOKINASE MB INCREASED [None]
  - BLOOD LACTATE DEHYDROGENASE INCREASED [None]
  - CHEST PAIN [None]
  - CONFUSIONAL STATE [None]
  - ELECTROCARDIOGRAM ST SEGMENT DEPRESSION [None]
  - ELECTROCARDIOGRAM ST SEGMENT ELEVATION [None]
  - HIGH DENSITY LIPOPROTEIN INCREASED [None]
  - KOUNIS SYNDROME [None]
  - LOW DENSITY LIPOPROTEIN INCREASED [None]
  - NAUSEA [None]
  - PARAESTHESIA [None]
  - TYPE 2 DIABETES MELLITUS [None]
  - VENTRICULAR HYPOKINESIA [None]
  - VERTIGO [None]
  - VOMITING [None]
